FAERS Safety Report 6250253-2 (Version None)
Quarter: 2009Q2

REPORT INFORMATION
  Report Type: 
  Country: None (occurrence: None)
  Receive Date: 20090626
  Receipt Date: 20090626
  Transmission Date: 20091009
  Serious: Yes (Other)
  Sender: FDA-Public Use
  Company Number: None

PATIENT
  Sex: Male
  Weight: 71.6683 kg

DRUGS (1)
  1. NIFEDIPINE [Suspect]
     Indication: BLOOD PRESSURE
     Dosage: 60 MG. A151 1 A DAY MOUTH
     Route: 048
     Dates: start: 20090201

REACTIONS (1)
  - PAIN [None]
